FAERS Safety Report 4561006-5 (Version None)
Quarter: 2005Q1

REPORT INFORMATION
  Report Type: 
  Country: None (occurrence: None)
  Receive Date: 20050126
  Receipt Date: 20040702
  Transmission Date: 20050727
  Serious: No
  Sender: FDA-Public Use
  Company Number: US-BRISTOL-MYERS SQUIBB COMPANY-12630794

PATIENT
  Age: 59 Year
  Sex: Female
  Weight: 88 kg

DRUGS (8)
  1. GLUCOPHAGE [Suspect]
     Indication: DIABETES MELLITUS
     Dosage: ONE WEEK LATER, THE DOSE WAS INCREASED TO 1000 MILLIGRAMS DAILY.
     Route: 048
     Dates: start: 20040618, end: 20040730
  2. ATENOLOL [Concomitant]
  3. PREMARIN [Concomitant]
  4. ALPRAZOLAM [Concomitant]
  5. PAXIL [Concomitant]
  6. ACIPHEX [Concomitant]
  7. BEXTRA [Concomitant]
  8. MULTIVITAMIN [Concomitant]

REACTIONS (2)
  - HEART RATE INCREASED [None]
  - MYALGIA [None]
